FAERS Safety Report 9720636 (Version 3)
Quarter: 2017Q3

REPORT INFORMATION
  Report Type: Spontaneous
  Country: BR (occurrence: BR)
  Receive Date: 20131129
  Receipt Date: 20170905
  Transmission Date: 20171128
  Serious: Yes (Hospitalization, Other)
  Sender: FDA-Public Use
  Company Number: PHHY2013BR124721

PATIENT
  Sex: Female

DRUGS (3)
  1. FORADIL [Suspect]
     Active Substance: FORMOTEROL FUMARATE
     Indication: ASTHMA
     Dosage: 2 DF, DAILY
     Route: 065
  2. FORADIL [Suspect]
     Active Substance: FORMOTEROL FUMARATE
     Dosage: UNK UKN, UNK
     Route: 065
  3. SYNTHROID [Concomitant]
     Active Substance: LEVOTHYROXINE SODIUM
     Indication: THYROID DISORDER
     Dosage: 1 TABLET DAILY
     Route: 048
     Dates: start: 2010

REACTIONS (3)
  - Pneumonia [Recovered/Resolved]
  - Asthma [Unknown]
  - Hypothyroidism [Not Recovered/Not Resolved]

NARRATIVE: CASE EVENT DATE: 201309
